FAERS Safety Report 8907000 (Version 2)
Quarter: 2012Q4

REPORT INFORMATION
  Report Type: 
  Country: US (occurrence: US)
  Receive Date: 20121114
  Receipt Date: 20121203
  Transmission Date: 20130627
  Serious: Yes (Hospitalization)
  Sender: FDA-Public Use
  Company Number: US-SANOFI-AVENTIS-2012SA082423

PATIENT
  Sex: Female
  Weight: 65.32 kg

DRUGS (9)
  1. LANTUS SOLOSTAR [Suspect]
     Indication: DIABETES MELLITUS
     Dosage: about 10  units daily
     Route: 058
     Dates: start: 2009
  2. LANTUS SOLOSTAR [Suspect]
     Indication: DIABETES MELLITUS
     Dosage: about 10  units daily
     Route: 058
     Dates: start: 2009
  3. SOLOSTAR [Suspect]
     Indication: DIABETES MELLITUS
  4. SOLOSTAR [Suspect]
     Indication: DIABETES MELLITUS
  5. LEVOTHYROXINE [Concomitant]
     Indication: HYPOTHYROIDISM
  6. LASIX [Concomitant]
     Indication: CONGESTIVE HEART FAILURE
  7. PROTONIX [Concomitant]
     Indication: HYPERACIDITY
  8. MIDODRINE [Concomitant]
     Indication: LOW BLOOD PRESSURE
  9. SIMVASTATIN [Concomitant]
     Indication: HIGH CHOLESTEROL

REACTIONS (1)
  - Cardiac failure congestive [Recovering/Resolving]
